FAERS Safety Report 14640654 (Version 1)
Quarter: 2018Q1

REPORT INFORMATION
  Report Type: Spontaneous
  Country: GB (occurrence: GB)
  Receive Date: 20180315
  Receipt Date: 20180315
  Transmission Date: 20180509
  Serious: Yes (Hospitalization, Other)
  Sender: FDA-Public Use
  Company Number: GB-BRACCO-2017GB04228

PATIENT
  Age: 56 Year
  Sex: Female

DRUGS (1)
  1. PROHANCE [Suspect]
     Active Substance: GADOTERIDOL
     Indication: NUCLEAR MAGNETIC RESONANCE IMAGING
     Dosage: 10 ML, SINGLE
     Route: 042
     Dates: start: 20170302, end: 20170302

REACTIONS (18)
  - Vomiting [Recovered/Resolved]
  - Dyspnoea [Recovering/Resolving]
  - Pain [Recovering/Resolving]
  - Head discomfort [Not Recovered/Not Resolved]
  - Chest pain [Recovered/Resolved]
  - Rectal haemorrhage [Recovering/Resolving]
  - Malaise [Recovering/Resolving]
  - Hypotension [Recovered/Resolved]
  - Sensation of foreign body [Recovering/Resolving]
  - Dysphonia [Recovering/Resolving]
  - Cough [Recovering/Resolving]
  - Reflux laryngitis [Recovering/Resolving]
  - Burning sensation [Recovering/Resolving]
  - Anaphylactic reaction [Recovering/Resolving]
  - Paraesthesia [Not Recovered/Not Resolved]
  - Gastrooesophageal reflux disease [Recovering/Resolving]
  - Muscle rigidity [Recovered/Resolved]
  - Gait disturbance [Recovering/Resolving]

NARRATIVE: CASE EVENT DATE: 20170302
